FAERS Safety Report 5011643-9 (Version None)
Quarter: 2006Q2

REPORT INFORMATION
  Report Type: 
  Country: None (occurrence: None)
  Receive Date: 20060526
  Receipt Date: 20060518
  Transmission Date: 20061013
  Serious: Yes (Death, Hospitalization, Other)
  Sender: FDA-Public Use
  Company Number: US-JNJFOC-20060206041

PATIENT
  Sex: Male
  Weight: 73.48 kg

DRUGS (2)
  1. REMICADE [Suspect]
     Indication: CROHN'S DISEASE
     Route: 042
  2. 5 ASA [Concomitant]
     Indication: CROHN'S DISEASE

REACTIONS (2)
  - BLOOD DISORDER [None]
  - MYELODYSPLASTIC SYNDROME [None]
